FAERS Safety Report 25162929 (Version 1)
Quarter: 2025Q2

REPORT INFORMATION
  Report Type: Spontaneous
  Country: DE (occurrence: DE)
  Receive Date: 20250404
  Receipt Date: 20250404
  Transmission Date: 20250717
  Serious: Yes (Other)
  Sender: BAYER
  Company Number: DE-DCGMA-25204830

PATIENT
  Age: 67 Year
  Sex: Male
  Weight: 94 kg

DRUGS (1)
  1. GADOBUTROL [Suspect]
     Active Substance: GADOBUTROL
     Route: 042
     Dates: start: 20250303, end: 20250303

REACTIONS (2)
  - Seizure [Unknown]
  - Resuscitation [Unknown]

NARRATIVE: CASE EVENT DATE: 20250303
